FAERS Safety Report 13305337 (Version 1)
Quarter: 2017Q1

REPORT INFORMATION
  Report Type: Other
  Country: ES (occurrence: ES)
  Receive Date: 20170308
  Receipt Date: 20170308
  Transmission Date: 20170428
  Serious: Yes (Hospitalization, Other)
  Sender: FDA-Public Use
  Company Number: ES-DEXPHARM-20170294

PATIENT
  Age: 67 Year
  Sex: Female

DRUGS (6)
  1. DIAZEPAM. [Interacting]
     Active Substance: DIAZEPAM
  2. PALIPERIDONE. [Interacting]
     Active Substance: PALIPERIDONE
  3. BIPERIDENE [Interacting]
     Active Substance: BIPERIDEN
  4. SERTRALINE [Interacting]
     Active Substance: SERTRALINE HYDROCHLORIDE
  5. CLOZAPINE. [Interacting]
     Active Substance: CLOZAPINE
  6. OMEPRAZOLE. [Suspect]
     Active Substance: OMEPRAZOLE

REACTIONS (3)
  - Colitis ischaemic [Recovered/Resolved]
  - Drug interaction [Recovered/Resolved]
  - Toxicity to various agents [Recovered/Resolved]
